FAERS Safety Report 4715965-8 (Version None)
Quarter: 2005Q3

REPORT INFORMATION
  Report Type: 
  Country: None (occurrence: None)
  Receive Date: 20050718
  Receipt Date: 20050311
  Transmission Date: 20060218
  Serious: Yes (Hospitalization, Other)
  Sender: FDA-Public Use
  Company Number: US-MERCK-0503USA02605

PATIENT
  Age: 70 Year
  Sex: Female
  Weight: 57 kg

DRUGS (5)
  1. SYNTHROID [Concomitant]
     Indication: HYPOTHYROIDISM
     Route: 048
     Dates: start: 20030101
  2. PREMARIN [Concomitant]
     Route: 048
     Dates: start: 20030101
  3. HYZAAR [Suspect]
     Route: 048
     Dates: start: 20030101
  4. DESYREL [Concomitant]
     Indication: DEPRESSION
     Route: 048
     Dates: start: 19880101
  5. VIOXX [Suspect]
     Indication: OSTEOARTHRITIS
     Route: 048
     Dates: start: 20010301, end: 20040530

REACTIONS (11)
  - ACUTE CORONARY SYNDROME [None]
  - BREAST CANCER [None]
  - CORONARY ARTERY DISEASE [None]
  - DRUG INEFFECTIVE [None]
  - GASTROINTESTINAL MUCOSAL DISORDER [None]
  - HYPERLIPIDAEMIA [None]
  - HYPERTENSION [None]
  - MYOCARDIAL INFARCTION [None]
  - NORMOCHROMIC NORMOCYTIC ANAEMIA [None]
  - RADICULOPATHY [None]
  - STRESS [None]
